FAERS Safety Report 9518492 (Version 1)
Quarter: 2013Q3

REPORT INFORMATION
  Report Type: Spontaneous
  Country: US (occurrence: None)
  Receive Date: 20130910
  Receipt Date: 20130910
  Transmission Date: 20140515
  Serious: No
  Sender: FDA-Public Use
  Company Number: 2013P1019014

PATIENT
  Age: 12 Year
  Sex: Female

DRUGS (1)
  1. LEVETIRACETAM [Suspect]
     Indication: EPILEPSY

REACTIONS (5)
  - Renal failure acute [None]
  - Metabolic acidosis [None]
  - Respiratory failure [None]
  - Drug level increased [None]
  - Toxic encephalopathy [None]
